FAERS Safety Report 20958968 (Version 1)
Quarter: 2022Q2

REPORT INFORMATION
  Report Type: Spontaneous
  Country: CN (occurrence: CN)
  Receive Date: 20220614
  Receipt Date: 20220614
  Transmission Date: 20220720
  Serious: Yes (Hospitalization)
  Sender: FDA-Public Use
  Company Number: CN-NOVARTISPH-NVSC2022CN134214

PATIENT
  Age: 54 Year
  Sex: Male
  Weight: 62 kg

DRUGS (2)
  1. AFINITOR [Suspect]
     Active Substance: EVEROLIMUS
     Indication: Targeted cancer therapy
     Dosage: 10 MG, QD
     Route: 048
     Dates: start: 20220420, end: 20220506
  2. AXITINIB [Concomitant]
     Active Substance: AXITINIB
     Indication: Targeted cancer therapy
     Dosage: 5 MG, BID
     Route: 048
     Dates: start: 20220420, end: 20220510

REACTIONS (2)
  - Erythromelalgia [Recovering/Resolving]
  - Drug eruption [Recovering/Resolving]

NARRATIVE: CASE EVENT DATE: 20220506
